FAERS Safety Report 4554325-X (Version None)
Quarter: 2005Q1

REPORT INFORMATION
  Report Type: 
  Country: None (occurrence: None)
  Receive Date: 20050118
  Receipt Date: 20041108
  Transmission Date: 20050727
  Serious: Yes (Hospitalization, Other)
  Sender: FDA-Public Use
  Company Number: PHEH2004US11990

PATIENT
  Age: 56 Year
  Sex: Female
  Weight: 38 kg

DRUGS (1)
  1. AREDIA [Suspect]
     Indication: MULTIPLE MYELOMA
     Dosage: UNK, QMO
     Dates: start: 20030701

REACTIONS (20)
  - ACTIVITIES OF DAILY LIVING IMPAIRED [None]
  - ANHEDONIA [None]
  - BONE DISORDER [None]
  - EATING DISORDER SYMPTOM [None]
  - FISTULA [None]
  - INDURATION [None]
  - INJURY [None]
  - MENTAL IMPAIRMENT [None]
  - MYELOMA RECURRENCE [None]
  - NASAL SINUS DRAINAGE [None]
  - ORAL SURGERY [None]
  - OSTEONECROSIS [None]
  - PAIN [None]
  - PATHOLOGICAL FRACTURE [None]
  - PHYSICAL DISABILITY [None]
  - PLASMACYTOMA [None]
  - PURULENT DISCHARGE [None]
  - SURGERY [None]
  - TOOTH LOSS [None]
  - WEIGHT DECREASED [None]
